FAERS Safety Report 6388565-4 (Version None)
Quarter: 2009Q3

REPORT INFORMATION
  Report Type: 
  Country: None (occurrence: None)
  Receive Date: 20090930
  Receipt Date: 20090914
  Transmission Date: 20100115
  Serious: Yes (Hospitalization, Other)
  Sender: FDA-Public Use
  Company Number: ENTC2009-0291

PATIENT
  Age: 80 Year
  Sex: Male

DRUGS (1)
  1. STALEVO 100 [Suspect]
     Indication: PARKINSON'S DISEASE
     Dosage: 3 TABLETS (150/37.5/200 MG)
     Route: 048
     Dates: start: 20040101

REACTIONS (5)
  - FALL [None]
  - HIP FRACTURE [None]
  - PLATELET COUNT DECREASED [None]
  - POSTOPERATIVE WOUND COMPLICATION [None]
  - WOUND HAEMORRHAGE [None]
